FAERS Safety Report 12423314 (Version 3)
Quarter: 2016Q2

REPORT INFORMATION
  Report Type: Spontaneous
  Country: CN (occurrence: CN)
  Receive Date: 20160601
  Receipt Date: 20160613
  Transmission Date: 20160815
  Serious: No
  Sender: FDA-Public Use
  Company Number: CN-009507513-1504CHN011359

PATIENT
  Age: 48 Year
  Sex: Female
  Weight: 42 kg

DRUGS (17)
  1. GRANULOCYTE COLONY STIMULATING FACTOR (UNSPECIFIED) [Concomitant]
     Active Substance: FILGRASTIM
     Indication: WHITE BLOOD CELL COUNT INCREASED
     Dosage: 0.1 MG, ONCE
     Route: 058
     Dates: start: 20150311, end: 20150312
  2. TROPISETRON HYDROCHLORIDE [Concomitant]
     Active Substance: TROPISETRON HYDROCHLORIDE
     Indication: PROPHYLAXIS OF NAUSEA AND VOMITING
     Dosage: 5 MG, QD
     Route: 041
     Dates: start: 20150314, end: 20150315
  3. FUROSEMIDE. [Concomitant]
     Active Substance: FUROSEMIDE
     Indication: POLYURIA
     Dosage: 20 MG, DAILY
     Route: 042
     Dates: start: 20150314, end: 20150315
  4. CISPLATIN. [Concomitant]
     Active Substance: CISPLATIN
     Indication: CHEMOTHERAPY
     Dosage: DOSE/SCHEDULE:50 MG, D1, D2; TREATMENT REGIMEN:GP, TREATMENT CYCLE:2
     Route: 041
     Dates: start: 20150314, end: 20150315
  5. GLUTATHIONE [Concomitant]
     Active Substance: GLUTATHIONE
     Indication: PROPHYLAXIS
     Dosage: 1.2 G, DIALY
     Route: 041
     Dates: start: 20150314, end: 20150315
  6. PHOSPHOCREATINE SODIUM [Concomitant]
     Indication: CARDIOVASCULAR EVENT PROPHYLAXIS
     Dosage: 1 G, DAILY
     Route: 041
     Dates: start: 20150314, end: 20150315
  7. EMEND [Suspect]
     Active Substance: APREPITANT
     Dosage: 80 MG, DAY 2
     Route: 048
     Dates: start: 20150315, end: 20150315
  8. EMEND [Suspect]
     Active Substance: APREPITANT
     Dosage: 80 MG, DAY 3
     Route: 048
     Dates: start: 20150316, end: 20150316
  9. AMBROXOL HYDROCHLORIDE [Concomitant]
     Active Substance: AMBROXOL HYDROCHLORIDE
     Indication: PRODUCTIVE COUGH
     Dosage: 30 MG, TID
     Route: 048
     Dates: start: 20150311
  10. MANNITOL. [Concomitant]
     Active Substance: MANNITOL
     Indication: REDUCTION OF INCREASED INTRACRANIAL PRESSURE
     Dosage: 250 ML/CC (DF), DAILY
     Route: 041
     Dates: start: 20150314, end: 20150315
  11. DEXTROSE (+) ELECTROLYTES (UNSPECIFIED) [Concomitant]
     Indication: PROPHYLAXIS
     Dosage: 500 ML/CC (DF), DAILY
     Route: 041
     Dates: start: 20150314, end: 20150315
  12. GEMCITABINE HYDROCHLORIDE. [Concomitant]
     Active Substance: GEMCITABINE HYDROCHLORIDE
     Indication: CHEMOTHERAPY
     Dosage: DOSE/SCHEDULE: 1G D1,D8, TREATMENT REGIMEN:GP, TREATMENT CYCLE:2
     Route: 041
     Dates: start: 20150314, end: 20150321
  13. ZOLEDRONIC ACID [Concomitant]
     Active Substance: ZOLEDRONIC ACID
     Indication: CANCER PAIN
     Dosage: 4 MG, ONCE
     Route: 041
     Dates: start: 20150311, end: 20150311
  14. POTASSIUM CHLORIDE. [Concomitant]
     Active Substance: POTASSIUM CHLORIDE
     Indication: ELECTROLYTE SUBSTITUTION THERAPY
     Dosage: 10 ML/ CC (DF), DAILY
     Route: 041
     Dates: start: 20150314, end: 20150315
  15. DEXAMETHASONE SODIUM PHOSPHATE. [Concomitant]
     Active Substance: DEXAMETHASONE SODIUM PHOSPHATE
     Indication: PROPHYLAXIS OF NAUSEA AND VOMITING
     Dosage: 10 MG, DAILY
     Route: 042
     Dates: start: 20150314, end: 20150315
  16. EMEND [Suspect]
     Active Substance: APREPITANT
     Indication: PROPHYLAXIS OF NAUSEA AND VOMITING
     Dosage: 125 MG, ONCE, DAY1
     Route: 048
     Dates: start: 20150314, end: 20150314
  17. FU FANG BAN MAO JIAO NANG [Concomitant]
     Indication: LUNG NEOPLASM MALIGNANT
     Dosage: 0.75 G, BID
     Route: 048
     Dates: start: 20150213

REACTIONS (1)
  - Neutrophil count decreased [Recovered/Resolved]

NARRATIVE: CASE EVENT DATE: 20150320
